FAERS Safety Report 8533139-X (Version None)
Quarter: 2012Q3

REPORT INFORMATION
  Report Type: 
  Country: None (occurrence: None)
  Receive Date: 20120724
  Receipt Date: 20120712
  Transmission Date: 20120928
  Serious: Yes (Hospitalization)
  Sender: FDA-Public Use
  Company Number: IT-ASTRAZENECA-2010SE59758

PATIENT
  Age: 25526 Day
  Sex: Male
  Weight: 60 kg

DRUGS (2)
  1. ZD6474 [Suspect]
     Indication: BILIARY CANCER METASTATIC
     Route: 048
     Dates: start: 20101004, end: 20101204
  2. ASPIRIN [Concomitant]
     Indication: ISCHAEMIC CARDIOMYOPATHY
     Route: 048
     Dates: start: 20011101

REACTIONS (1)
  - EPILEPSY [None]
